FAERS Safety Report 18547527 (Version 2)
Quarter: 2020Q4

REPORT INFORMATION
  Report Type: Report from Study
  Country: US (occurrence: US)
  Receive Date: 20201125
  Receipt Date: 20201201
  Transmission Date: 20210114
  Serious: Yes (Other)
  Sender: FDA-Public Use
  Company Number: US-BAUSCH-BL-2020-034364

PATIENT
  Age: 72 Year
  Sex: Male

DRUGS (1)
  1. XIFAXAN [Suspect]
     Active Substance: RIFAXIMIN
     Indication: HEPATIC STEATOSIS
     Route: 048
     Dates: end: 20201106

REACTIONS (6)
  - Malaise [Unknown]
  - Oedema peripheral [Unknown]
  - Hepatic encephalopathy [Not Recovered/Not Resolved]
  - Therapy interrupted [Unknown]
  - Varices oesophageal [Unknown]
  - Colon cancer stage IV [Not Recovered/Not Resolved]

NARRATIVE: CASE EVENT DATE: 202011
